FAERS Safety Report 13500219 (Version 3)
Quarter: 2017Q2

REPORT INFORMATION
  Report Type: Report from Study
  Country: US (occurrence: US)
  Receive Date: 20170501
  Receipt Date: 20170607
  Transmission Date: 20170830
  Serious: Yes (Hospitalization)
  Sender: FDA-Public Use
  Company Number: US-GILEAD-2017-0270172

PATIENT
  Age: 62 Year
  Sex: Female

DRUGS (30)
  1. ESOMEPRA [Concomitant]
     Active Substance: ESOMEPRAZOLE
  2. TRIAMCINOLON                       /00031901/ [Concomitant]
  3. RENVELA [Concomitant]
     Active Substance: SEVELAMER CARBONATE
  4. HYDROXYZINE [Concomitant]
     Active Substance: HYDROXYZINE HYDROCHLORIDE
  5. OXYCODONE/APAP                     /00867901/ [Concomitant]
     Active Substance: ACETAMINOPHEN\OXYCODONE HYDROCHLORIDE
  6. HYDROCODONE BITARTRATE AND ACETAMINOPHEN [Concomitant]
     Active Substance: ACETAMINOPHEN\HYDROCODONE BITARTRATE
  7. METOPROL XL [Concomitant]
  8. OXYCODONE [Concomitant]
     Active Substance: OXYCODONE
  9. ASPIRIN                            /00002701/ [Concomitant]
     Active Substance: ASPIRIN
  10. DICYCLOMINE                        /00068601/ [Concomitant]
     Active Substance: DICYCLOMINE HYDROCHLORIDE
  11. ESOMEPRAZOLE MAGNESIUM. [Concomitant]
     Active Substance: ESOMEPRAZOLE MAGNESIUM
  12. ADCIRCA [Concomitant]
     Active Substance: TADALAFIL
  13. DICYCLOMINE                        /00068601/ [Concomitant]
     Active Substance: DICYCLOMINE HYDROCHLORIDE
  14. FERROUS SULFATE. [Concomitant]
     Active Substance: FERROUS SULFATE
  15. AMBRISENTAN [Suspect]
     Active Substance: AMBRISENTAN
     Indication: PULMONARY HYPERTENSION
     Dosage: 5 MG, QD
     Route: 065
     Dates: start: 20160511
  16. METRONIDAZOL                       /00012501/ [Concomitant]
     Active Substance: METRONIDAZOLE
  17. TRIAMCINOLON                       /00031901/ [Concomitant]
  18. CHOLESTYRAMIN [Concomitant]
  19. METRONIDAZOL                       /00012501/ [Concomitant]
     Active Substance: METRONIDAZOLE
  20. PROAIR HFA [Concomitant]
     Active Substance: ALBUTEROL SULFATE
  21. SUCRALFATE. [Concomitant]
     Active Substance: SUCRALFATE
  22. ALPRAZOLAM. [Concomitant]
     Active Substance: ALPRAZOLAM
  23. METOCLOPRAM [Concomitant]
     Active Substance: METOCLOPRAMIDE
  24. PANTOPRAZOLE [Concomitant]
     Active Substance: PANTOPRAZOLE
  25. FOLIC ACID. [Concomitant]
     Active Substance: FOLIC ACID
  26. ONDANSETRON [Concomitant]
     Active Substance: ONDANSETRON
  27. PROAIR HFA [Concomitant]
     Active Substance: ALBUTEROL SULFATE
  28. RANITIDINE. [Concomitant]
     Active Substance: RANITIDINE
  29. ZOLPIDEM [Concomitant]
     Active Substance: ZOLPIDEM\ZOLPIDEM TARTRATE
  30. VITAMIN B COMPLEX [Concomitant]
     Active Substance: CYANOCOBALAMIN\DEXPANTHENOL\NIACINAMIDE\PYRIDOXINE HYDROCHLORIDE\RIBOFLAVIN 5^-PHOSPHATE SODIUM\THIAMINE HYDROCHLORIDE\VITAMIN B COMPLEX

REACTIONS (7)
  - Headache [Unknown]
  - Memory impairment [Unknown]
  - Drug dose omission [Unknown]
  - Diarrhoea [Not Recovered/Not Resolved]
  - Blood pressure increased [Unknown]
  - Nausea [Not Recovered/Not Resolved]
  - Drug interaction [Unknown]

NARRATIVE: CASE EVENT DATE: 201704
